FAERS Safety Report 5643780-X (Version None)
Quarter: 2008Q1

REPORT INFORMATION
  Report Type: 
  Country: None (occurrence: None)
  Receive Date: 20080226
  Receipt Date: 20080218
  Transmission Date: 20080703
  Serious: Yes (Death)
  Sender: FDA-Public Use
  Company Number: ADE2008-0133

PATIENT
  Age: 54 Year
  Sex: Male

DRUGS (2)
  1. METOPROLOL TARTRATE [Suspect]
     Indication: TACHYCARDIA
     Dosage: 2.5MG - 2 DOSES -IV
     Route: 042
  2. ASPIRIN [Concomitant]

REACTIONS (10)
  - BLOOD PRESSURE SYSTOLIC DECREASED [None]
  - CHEST PAIN [None]
  - DRUG INTERACTION [None]
  - ELECTROMECHANICAL DISSOCIATION [None]
  - HYPERHIDROSIS [None]
  - JUGULAR VEIN DISTENSION [None]
  - NAUSEA [None]
  - PALLOR [None]
  - PULSE ABSENT [None]
  - UNRESPONSIVE TO STIMULI [None]
